APPROVED DRUG PRODUCT: GABAPENTIN
Active Ingredient: GABAPENTIN
Strength: 600MG
Dosage Form/Route: TABLET;ORAL
Application: A077662 | Product #001 | TE Code: AB1
Applicant: GLENMARK PHARMACEUTICALS LTD
Approved: Aug 18, 2006 | RLD: No | RS: No | Type: RX